FAERS Safety Report 7402610-6 (Version None)
Quarter: 2011Q2

REPORT INFORMATION
  Report Type: 
  Country: None (occurrence: None)
  Receive Date: 20110408
  Receipt Date: 20110326
  Transmission Date: 20111010
  Serious: Yes (Hospitalization)
  Sender: FDA-Public Use
  Company Number: DE-JNJFOC-20110311155

PATIENT
  Sex: Male
  Weight: 65 kg

DRUGS (3)
  1. AZATHIOPRINE [Concomitant]
  2. AZATHIOPRINE [Concomitant]
  3. REMICADE [Suspect]
     Indication: CROHN'S DISEASE
     Dosage: TOTAL 3 INFUSIONS
     Route: 042

REACTIONS (1)
  - PULMONARY TUBERCULOSIS [None]
